FAERS Safety Report 8612015-8 (Version None)
Quarter: 2012Q3

REPORT INFORMATION
  Report Type: 
  Country: None (occurrence: None)
  Receive Date: 20120822
  Receipt Date: 20120807
  Transmission Date: 20120928
  Serious: Yes (Hospitalization)
  Sender: FDA-Public Use
  Company Number: DE-GLAXOSMITHKLINE-B0822639A

PATIENT
  Sex: Female
  Weight: 75 kg

DRUGS (5)
  1. TRASTUZUMAB [Suspect]
     Indication: BREAST CANCER
     Dosage: 456MG EVERY 3 WEEKS
     Route: 042
     Dates: start: 20120426
  2. LAPATINIB [Suspect]
     Indication: BREAST CANCER
     Dosage: 750MG PER DAY
     Route: 048
     Dates: start: 20120426
  3. DOXORUBICIN HYDROCHLORIDE [Suspect]
     Indication: BREAST CANCER
     Dosage: 29MG WEEKLY
     Route: 042
     Dates: start: 20120426
  4. PACLITAXEL [Suspect]
     Indication: BREAST CANCER
     Dosage: 117MG WEEKLY
     Route: 042
     Dates: start: 20120426
  5. CARBOPLATIN [Suspect]
     Indication: BREAST CANCER
     Dosage: 300MG WEEKLY
     Route: 042
     Dates: start: 20120426

REACTIONS (1)
  - PYREXIA [None]
